FAERS Safety Report 4519504-6 (Version None)
Quarter: 2004Q4

REPORT INFORMATION
  Report Type: 
  Country: None (occurrence: None)
  Receive Date: 20041202
  Receipt Date: 20041124
  Transmission Date: 20050328
  Serious: Yes (Hospitalization)
  Sender: FDA-Public Use
  Company Number: 20040042USST

PATIENT
  Age: 69 Year
  Sex: Male

DRUGS (12)
  1. LEVOCARNIL (LEVOCARNITINE) [Suspect]
     Indication: MALNUTRITION
     Dosage: 200 MG/ML
     Dates: start: 20040220, end: 20040309
  2. CETORNAN [Concomitant]
  3. DOLIPRANE [Concomitant]
  4. TAVANIC [Concomitant]
  5. ATARAX [Concomitant]
  6. PRAXINOR [Concomitant]
  7. IMOVANE [Concomitant]
  8. OMEPRAZOLE [Concomitant]
  9. MOTILLUM [Concomitant]
  10. FORLAX [Concomitant]
  11. NICOBIAN [Concomitant]
  12. BENERVA [Concomitant]

REACTIONS (6)
  - CACHEXIA [None]
  - DIFFICULTY IN WALKING [None]
  - FALL [None]
  - NOCTURIA [None]
  - ORTHOSTATIC HYPOTENSION [None]
  - PYREXIA [None]
